FAERS Safety Report 14480469 (Version 1)
Quarter: 2018Q1

REPORT INFORMATION
  Report Type: Spontaneous
  Country: US (occurrence: US)
  Receive Date: 20180201
  Receipt Date: 20180201
  Transmission Date: 20180509
  Serious: Yes (Hospitalization)
  Sender: FDA-Public Use
  Company Number: None

PATIENT
  Age: 11 Year
  Sex: Male

DRUGS (16)
  1. VITAMIN E [Concomitant]
     Active Substance: .ALPHA.-TOCOPHEROL
  2. VENTOLIN [Concomitant]
     Active Substance: ALBUTEROL SULFATE
  3. COMPLETE FORMULATION SOFTGEL MULTIVITAMIN [Concomitant]
     Active Substance: VITAMINS
  4. RANITIDINE. [Concomitant]
     Active Substance: RANITIDINE
  5. KALYDECO [Suspect]
     Active Substance: IVACAFTOR
     Indication: CYSTIC FIBROSIS
     Route: 048
     Dates: start: 20161123
  6. VITAMIN D3 [Concomitant]
     Active Substance: CHOLECALCIFEROL
  7. ALTERA HANDSET [Concomitant]
  8. COLISTIMETHATE 150MG VIAL [Suspect]
     Active Substance: COLISTIMETHATE SODIUM
     Indication: CYSTIC FIBROSIS
     Dosage: ROUTE - ORAL NEBULIZED
     Route: 048
     Dates: start: 20170301
  9. CREON [Concomitant]
     Active Substance: PANCRELIPASE AMYLASE\PANCRELIPASE LIPASE\PANCRELIPASE PROTEASE
  10. TOBRAMYCIN. [Concomitant]
     Active Substance: TOBRAMYCIN
  11. STERILE WATER [Concomitant]
     Active Substance: WATER
  12. SODIUM CHLORIDE. [Concomitant]
     Active Substance: SODIUM CHLORIDE
  13. CAYSTON [Concomitant]
     Active Substance: AZTREONAM
  14. PASIK PLUS [Concomitant]
  15. PALMOZYME [Concomitant]
  16. QVAR [Concomitant]
     Active Substance: BECLOMETHASONE DIPROPIONATE

REACTIONS (1)
  - Hospitalisation [None]

NARRATIVE: CASE EVENT DATE: 20180127
